FAERS Safety Report 24204350 (Version 1)
Quarter: 2024Q3

REPORT INFORMATION
  Report Type: Other
  Country: GB (occurrence: GB)
  Receive Date: 20240813
  Receipt Date: 20240813
  Transmission Date: 20241016
  Serious: Yes (Other)
  Sender: GLENMARK
  Company Number: GB-MHRA-TPP12479291C576475YC1722346102666

PATIENT

DRUGS (4)
  1. MONTELUKAST SODIUM [Suspect]
     Active Substance: MONTELUKAST SODIUM
     Indication: Product used for unknown indication
     Dosage: 10 MILLIGRAM
     Route: 065
     Dates: start: 20240725
  2. ALBUTEROL [Concomitant]
     Active Substance: ALBUTEROL
     Indication: Dyspnoea
     Dosage: TAKE ONE OR TWO PUFFS WHEN REQUIRED FOR BREATHL...
     Dates: start: 20230730
  3. SOPROBEC [Concomitant]
     Indication: Ill-defined disorder
     Dosage: 2 DOSAGE FORM, BID INHALE 2 DOSES TWICE DAILY
     Dates: start: 20230730
  4. OMEPRAZOLE [Concomitant]
     Active Substance: OMEPRAZOLE
     Indication: Ill-defined disorder
     Dosage: 1 DOSAGE FORM, OD TAKE ONE DAILY
     Route: 065
     Dates: start: 20230914

REACTIONS (2)
  - Adverse drug reaction [Recovered/Resolved]
  - Headache [Recovered/Resolved]
